FAERS Safety Report 9332457 (Version 1)
Quarter: 2013Q2

REPORT INFORMATION
  Report Type: Spontaneous
  Country: JP (occurrence: JP)
  Receive Date: 20130606
  Receipt Date: 20130606
  Transmission Date: 20140414
  Serious: Yes (Other)
  Sender: FDA-Public Use
  Company Number: JP-ROCHE-1231608

PATIENT
  Age: 44 Year
  Sex: Female

DRUGS (1)
  1. AVASTIN [Suspect]
     Indication: METASTATIC GASTRIC CANCER
     Dosage: DOSAGE IS UNCERTAIN.
     Route: 041

REACTIONS (5)
  - Haematemesis [Recovering/Resolving]
  - Shock haemorrhagic [Recovering/Resolving]
  - Vascular pseudoaneurysm ruptured [Recovering/Resolving]
  - Vascular pseudoaneurysm [Recovering/Resolving]
  - Oesophageal fistula [Recovering/Resolving]
